FAERS Safety Report 18050125 (Version 1)
Quarter: 2020Q3

REPORT INFORMATION
  Report Type: Spontaneous
  Country: US (occurrence: US)
  Receive Date: 20200721
  Receipt Date: 20200721
  Transmission Date: 20201103
  Serious: Yes (Hospitalization)
  Sender: FDA-Public Use
  Company Number: None

PATIENT
  Sex: Female

DRUGS (8)
  1. METHOTREXATE. [Concomitant]
     Active Substance: METHOTREXATE
  2. XANAX [Concomitant]
     Active Substance: ALPRAZOLAM
  3. NAPROXEN. [Concomitant]
     Active Substance: NAPROXEN
  4. HYDROCHLOROT [Concomitant]
     Active Substance: HYDROCHLOROTHIAZIDE
  5. ORENCIA [Suspect]
     Active Substance: ABATACEPT
     Indication: RHEUMATOID ARTHRITIS
     Route: 058
     Dates: start: 20180419
  6. FOLIC ACID. [Concomitant]
     Active Substance: FOLIC ACID
  7. JUICE/FIBRE [Concomitant]
  8. SULFASALAZINE. [Concomitant]
     Active Substance: SULFASALAZINE

REACTIONS (2)
  - COVID-19 [None]
  - Therapy interrupted [None]
